APPROVED DRUG PRODUCT: ADAPALENE
Active Ingredient: ADAPALENE
Strength: 0.1%
Dosage Form/Route: SOLUTION;TOPICAL
Application: A204593 | Product #001 | TE Code: AB
Applicant: WAYLIS THERAPEUTICS LLC
Approved: Jan 5, 2016 | RLD: No | RS: No | Type: RX